FAERS Safety Report 6364549-7 (Version None)
Quarter: 2009Q3

REPORT INFORMATION
  Report Type: 
  Country: None (occurrence: None)
  Receive Date: 20090919
  Receipt Date: 20090723
  Transmission Date: 20100115
  Serious: No
  Sender: FDA-Public Use
  Company Number: US-ABBOTT-09P-163-0587822-00

PATIENT
  Sex: Female
  Weight: 61.29 kg

DRUGS (10)
  1. HUMIRA [Suspect]
     Indication: RHEUMATOID ARTHRITIS
     Dates: start: 20080801, end: 20090714
  2. HUMIRA [Suspect]
     Dates: start: 20090714
  3. SALSALATE [Concomitant]
     Indication: RHEUMATOID ARTHRITIS
  4. SEROQUEL [Concomitant]
     Indication: INSOMNIA
  5. ACTONEL [Concomitant]
     Indication: OSTEOPOROSIS
  6. CYMBALTA [Concomitant]
     Indication: FIBROMYALGIA
  7. CYMBALTA [Concomitant]
     Indication: MAJOR DEPRESSION
  8. ACCURATE [Concomitant]
     Indication: HYPERTENSION
  9. CALCIUM [Concomitant]
     Indication: MINERAL SUPPLEMENTATION
  10. TYLOX [Concomitant]
     Indication: PAIN

REACTIONS (1)
  - RHEUMATOID ARTHRITIS [None]
